FAERS Safety Report 16696266 (Version 1)
Quarter: 2019Q3

REPORT INFORMATION
  Report Type: Spontaneous
  Country: US (occurrence: US)
  Receive Date: 20190813
  Receipt Date: 20190813
  Transmission Date: 20191004
  Serious: Yes (Other)
  Sender: FDA-Public Use
  Company Number: US-ASTELLAS-2019US026896

PATIENT
  Age: 9 Decade
  Sex: Female

DRUGS (3)
  1. LEXISCAN [Suspect]
     Active Substance: REGADENOSON
     Indication: ANGINA PECTORIS
  2. LEXISCAN [Suspect]
     Active Substance: REGADENOSON
     Indication: SCAN MYOCARDIAL PERFUSION
     Dosage: UNK UNK, UNKNOWN FREQ.
     Route: 065
     Dates: start: 20190530
  3. LEXISCAN [Suspect]
     Active Substance: REGADENOSON
     Indication: CORONARY ARTERY DISEASE

REACTIONS (6)
  - Pain in extremity [Unknown]
  - Vomiting [Unknown]
  - Arthralgia [Unknown]
  - Bone pain [Recovered/Resolved]
  - Back pain [Unknown]
  - Nausea [Unknown]

NARRATIVE: CASE EVENT DATE: 20190530
